FAERS Safety Report 17452206 (Version 1)
Quarter: 2020Q1

REPORT INFORMATION
  Report Type: Spontaneous
  Country: US (occurrence: US)
  Receive Date: 20200224
  Receipt Date: 20200224
  Transmission Date: 20200409
  Serious: Yes (Other)
  Sender: FDA-Public Use
  Company Number: US-PARI RESPIRATORY EQUIPMENT, INC.-2020PAR00007

PATIENT
  Age: 2 Year
  Sex: Male

DRUGS (8)
  1. CEFDINIR. [Concomitant]
     Active Substance: CEFDINIR
  2. KETOCONAZOLE. [Concomitant]
     Active Substance: KETOCONAZOLE
  3. MONTELUKAST [Concomitant]
     Active Substance: MONTELUKAST SODIUM
  4. PULMICORT TURBUHALER [Concomitant]
     Active Substance: BUDESONIDE
  5. LORATIDINE [Concomitant]
     Active Substance: LORATADINE
  6. KITABIS PAK [Suspect]
     Active Substance: TOBRAMYCIN
     Dosage: 300 MG, 2X/DAY VIA NEBULIZER
     Dates: start: 20180725
  7. ALBUTEROL. [Concomitant]
     Active Substance: ALBUTEROL
  8. CUVPOSA [Concomitant]
     Active Substance: GLYCOPYRROLATE

REACTIONS (2)
  - Off label use [Unknown]
  - Pneumonia [Unknown]

NARRATIVE: CASE EVENT DATE: 20180725
